FAERS Safety Report 22152023 (Version 1)
Quarter: 2023Q1

REPORT INFORMATION
  Report Type: Spontaneous
  Country: CN (occurrence: None)
  Receive Date: 20230329
  Receipt Date: 20230329
  Transmission Date: 20230418
  Serious: Yes (Other)
  Sender: FDA-Public Use
  Company Number: CN-ROCHE-3315570

PATIENT
  Age: 31 Year
  Sex: Male

DRUGS (13)
  1. MABTHERA [Suspect]
     Active Substance: RITUXIMAB
     Indication: Diffuse large B-cell lymphoma
     Dosage: R-CHOP REGIMEN FOR THREE CYCLES
     Route: 065
     Dates: start: 2022
  2. MABTHERA [Suspect]
     Active Substance: RITUXIMAB
     Dosage: R-GEMOX+ZANUBRUTINIB REGIMEN
     Route: 065
     Dates: start: 2022
  3. MABTHERA [Suspect]
     Active Substance: RITUXIMAB
     Dosage: R-HDMTX+ZANUBRUTINIB FOR 2 CYCLES
     Route: 065
     Dates: start: 2022
  4. CYCLOPHOSPHAMIDE [Concomitant]
     Active Substance: CYCLOPHOSPHAMIDE
     Indication: Diffuse large B-cell lymphoma
     Dosage: R-CHOP REGIMEN FOR THREE CYCLES
     Dates: start: 2022
  5. VINCRISTINE [Concomitant]
     Active Substance: VINCRISTINE
     Indication: Diffuse large B-cell lymphoma
     Dosage: R-CHOP REGIMEN FOR THREE CYCLES
     Dates: start: 2022
  6. DOXORUBICIN [Concomitant]
     Active Substance: DOXORUBICIN
     Indication: Diffuse large B-cell lymphoma
     Dosage: R-CHOP REGIMEN FOR THREE CYCLES
     Dates: start: 2022
  7. PREDNISONE [Concomitant]
     Active Substance: PREDNISONE
     Indication: Diffuse large B-cell lymphoma
     Dosage: R-CHOP REGIMEN FOR THREE CYCLES
     Dates: start: 2022
  8. GEMCITABINE [Concomitant]
     Active Substance: GEMCITABINE
     Indication: Diffuse large B-cell lymphoma
     Dosage: R-GEMOX+ZANUBRUTINIB REGIMEN
     Dates: start: 2022
  9. OXALIPLATIN [Concomitant]
     Active Substance: OXALIPLATIN
     Indication: Diffuse large B-cell lymphoma
     Dosage: R-GEMOX+ZANUBRUTINIB REGIMEN
     Dates: start: 2022
  10. ZANUBRUTINIB [Concomitant]
     Active Substance: ZANUBRUTINIB
     Indication: Diffuse large B-cell lymphoma
     Dosage: R-GEMOX+ZANUBRUTINIB REGIMEN
     Dates: start: 2022
  11. ZANUBRUTINIB [Concomitant]
     Active Substance: ZANUBRUTINIB
     Dosage: R-HDMTX+ ZANUBRUTINIB REGIMEN FOR 2 CYCLES
     Dates: start: 2022
  12. METHOTREXATE PCH [Concomitant]
     Indication: Diffuse large B-cell lymphoma
     Dosage: R-HDMTX+ ZANUBRUTINIB REGIMEN FOR 2 CYCLES
     Dates: start: 2022
  13. SELINEXOR [Concomitant]
     Active Substance: SELINEXOR
     Indication: Diffuse large B-cell lymphoma

REACTIONS (3)
  - Acute kidney injury [Unknown]
  - Myelosuppression [Unknown]
  - Ascites [Unknown]
